FAERS Safety Report 7922570-9 (Version None)
Quarter: 2011Q4

REPORT INFORMATION
  Report Type: 
  Country: None (occurrence: None)
  Receive Date: 20111117
  Receipt Date: 20110119
  Transmission Date: 20120403
  Serious: No
  Sender: FDA-Public Use
  Company Number: US-AMGEN-USASP2011003423

PATIENT
  Age: 68 Year
  Sex: Female

DRUGS (2)
  1. ENBREL [Suspect]
     Indication: RHEUMATOID ARTHRITIS
     Dates: start: 20100706, end: 20110104
  2. ENBREL [Suspect]
     Indication: OFF LABEL USE

REACTIONS (8)
  - MOUTH ULCERATION [None]
  - NODULE [None]
  - PAIN IN EXTREMITY [None]
  - ERYTHEMA [None]
  - SKIN DISCOLOURATION [None]
  - THERAPEUTIC RESPONSE DECREASED [None]
  - CARPAL TUNNEL SYNDROME [None]
  - LOCALISED INFECTION [None]
